FAERS Safety Report 21009926 (Version 1)
Quarter: 2022Q2

REPORT INFORMATION
  Report Type: Report from Study
  Country: BR (occurrence: BR)
  Receive Date: 20220627
  Receipt Date: 20220627
  Transmission Date: 20220721
  Serious: Yes (Other)
  Sender: FDA-Public Use
  Company Number: BR-Merck Healthcare KGaA-9331059

PATIENT
  Age: 56 Year
  Sex: Male

DRUGS (1)
  1. CETUXIMAB [Suspect]
     Active Substance: CETUXIMAB
     Indication: Colon cancer metastatic
     Dosage: 1064 MG, 2/M
     Route: 042
     Dates: start: 20220418

REACTIONS (5)
  - Immunodeficiency [Recovered/Resolved]
  - Feeding disorder [Recovered/Resolved]
  - COVID-19 [Recovered/Resolved]
  - Hepatic enzyme increased [Recovered/Resolved]
  - Off label use [Unknown]

NARRATIVE: CASE EVENT DATE: 20220501
